FAERS Safety Report 24824919 (Version 1)
Quarter: 2025Q1

REPORT INFORMATION
  Report Type: Spontaneous
  Country: US (occurrence: US)
  Receive Date: 20250109
  Receipt Date: 20250109
  Transmission Date: 20250409
  Serious: Yes (Other)
  Sender: BAUSCH AND LOMB
  Company Number: US-BAUSCH-BL-2025-000116

PATIENT
  Age: 45 Year
  Sex: Male

DRUGS (1)
  1. MONOBENZONE [Suspect]
     Active Substance: MONOBENZONE
     Indication: Vitiligo
     Route: 065

REACTIONS (4)
  - Conjunctival primary acquired melanosis [Unknown]
  - Pinguecula [Unknown]
  - Conjunctival pigmentation [Unknown]
  - Disease progression [Unknown]
